FAERS Safety Report 11618224 (Version 1)
Quarter: 2015Q4

REPORT INFORMATION
  Report Type: Spontaneous
  Country: JP (occurrence: JP)
  Receive Date: 20151011
  Receipt Date: 20151011
  Transmission Date: 20160304
  Serious: Yes (Death, Hospitalization, Other)
  Sender: FDA-Public Use
  Company Number: JP-AMGEN-JPNSP2015037033

PATIENT
  Age: 68 Year
  Sex: Male
  Weight: 64.5 kg

DRUGS (17)
  1. CELECOX [Concomitant]
     Active Substance: CELECOXIB
     Dosage: 100 MG, BID
     Route: 048
     Dates: start: 20141020
  2. DECADRON                           /00016002/ [Concomitant]
     Active Substance: DEXAMETHASONE
     Dosage: 9.9 MG, UNK
     Route: 041
     Dates: start: 20141015, end: 20150318
  3. PARIET [Concomitant]
     Active Substance: RABEPRAZOLE SODIUM
     Dosage: 10 MG, QD
     Route: 048
     Dates: start: 20141020
  4. 5-FU                               /00098801/ [Suspect]
     Active Substance: FLUOROURACIL
     Dosage: 4200 MG, Q2WEEKS
     Route: 041
     Dates: start: 20141015, end: 20141112
  5. CALCIUM LEVOFOLINATE [Concomitant]
     Active Substance: LEVOLEUCOVORIN CALCIUM
     Dosage: 325 MG, Q2WEEKS
     Route: 041
     Dates: start: 20141126, end: 20150318
  6. ALOXI [Concomitant]
     Active Substance: PALONOSETRON HYDROCHLORIDE
     Dosage: 0.75 MG, UNK
     Route: 041
     Dates: start: 20141015, end: 20150318
  7. DECADRON                           /00016002/ [Concomitant]
     Active Substance: DEXAMETHASONE
     Dosage: 2 MG, BID
     Route: 048
     Dates: start: 20141015, end: 20150318
  8. VECTIBIX [Suspect]
     Active Substance: PANITUMUMAB
     Dosage: 280 MG, Q2WEEKS
     Route: 041
     Dates: start: 20150318, end: 20150318
  9. CALCIUM LEVOFOLINATE [Concomitant]
     Active Substance: LEVOLEUCOVORIN CALCIUM
     Indication: COLON CANCER
     Dosage: 350 MG, Q2WEEKS
     Route: 041
     Dates: start: 20141015, end: 20141112
  10. 5-FU                               /00098801/ [Suspect]
     Active Substance: FLUOROURACIL
     Dosage: UNK UNK, Q2WEEKS
     Route: 042
     Dates: start: 20141126, end: 20150318
  11. ELENTAL [Concomitant]
     Active Substance: AMINO ACIDS\CARBOHYDRATES\MINERALS\SOYBEAN OIL\VITAMINS
     Dosage: 80 G, UNK
     Route: 048
     Dates: start: 20141014, end: 20150311
  12. VECTIBIX [Suspect]
     Active Substance: PANITUMUMAB
     Dosage: 360 MG, Q2WEEKS
     Route: 041
     Dates: start: 20141126, end: 20150218
  13. ELPLAT [Suspect]
     Active Substance: OXALIPLATIN
     Indication: COLON CANCER
     Dosage: 148 MG, Q2WEEKS
     Route: 041
     Dates: start: 20141015, end: 20141112
  14. ELPLAT [Suspect]
     Active Substance: OXALIPLATIN
     Dosage: 143 MG, Q2WEEKS
     Route: 041
     Dates: start: 20141126, end: 20150318
  15. 5-FU                               /00098801/ [Suspect]
     Active Substance: FLUOROURACIL
     Indication: COLON CANCER
     Dosage: 700 MG, Q2WK
     Route: 040
     Dates: start: 20141015, end: 20141112
  16. VECTIBIX [Suspect]
     Active Substance: PANITUMUMAB
     Indication: COLON CANCER
     Dosage: 400 MG, Q2WEEKS
     Route: 041
     Dates: start: 20141029, end: 20141112
  17. MAGMITT [Concomitant]
     Active Substance: MAGNESIUM OXIDE
     Dosage: 660 MG, TID
     Route: 048
     Dates: start: 20141006

REACTIONS (2)
  - Bundle branch block right [Not Recovered/Not Resolved]
  - Interstitial lung disease [Fatal]

NARRATIVE: CASE EVENT DATE: 20141014
